FAERS Safety Report 7146106-8 (Version None)
Quarter: 2010Q4

REPORT INFORMATION
  Report Type: 
  Country: None (occurrence: None)
  Receive Date: 20101208
  Receipt Date: 20101130
  Transmission Date: 20110411
  Serious: Yes (Hospitalization, Other)
  Sender: FDA-Public Use
  Company Number: US-MERCK-1011USA03881

PATIENT
  Age: 66 Year
  Sex: Male
  Weight: 83 kg

DRUGS (10)
  1. ZOCOR [Suspect]
     Indication: BLOOD CHOLESTEROL INCREASED
     Route: 048
  2. TRILIPIX [Suspect]
     Indication: BLOOD TRIGLYCERIDES INCREASED
     Route: 065
     Dates: start: 20100501
  3. PLAVIX [Suspect]
     Indication: AORTIC EMBOLUS
     Route: 065
     Dates: start: 20100701
  4. TRAMADOL HYDROCHLORIDE [Concomitant]
     Indication: PAIN
     Route: 065
  5. METOPROLOL [Concomitant]
     Indication: HYPERTENSION
     Route: 065
  6. HYDROCHLOROTHIAZIDE [Concomitant]
     Indication: HYPERTENSION
     Route: 048
  7. ALLOPURINOL [Concomitant]
     Indication: OEDEMA PERIPHERAL
     Route: 065
  8. LORATADINE [Concomitant]
     Indication: HYPERSENSITIVITY
     Route: 065
  9. MORNIFLUMATE [Concomitant]
     Indication: URINARY TRACT DISORDER
     Route: 065
  10. PAMIDRONATE DISODIUM [Concomitant]
     Indication: RENAL CANCER
     Route: 065

REACTIONS (15)
  - AORTIC EMBOLUS [None]
  - BLOOD CREATININE INCREASED [None]
  - BLOOD TRIGLYCERIDES INCREASED [None]
  - DIARRHOEA [None]
  - DIZZINESS [None]
  - DRUG INEFFECTIVE [None]
  - DUODENAL ULCER HAEMORRHAGE [None]
  - DYSPNOEA [None]
  - GLOMERULAR FILTRATION RATE DECREASED [None]
  - HAEMATOCHEZIA [None]
  - HYDROCEPHALUS [None]
  - METASTASES TO SPINE [None]
  - RENAL CANCER [None]
  - RHINORRHOEA [None]
  - STAPHYLOCOCCAL INFECTION [None]
